FAERS Safety Report 19490488 (Version 1)
Quarter: 2021Q3

REPORT INFORMATION
  Report Type: Spontaneous
  Country: US (occurrence: US)
  Receive Date: 20210705
  Receipt Date: 20210705
  Transmission Date: 20211014
  Serious: No
  Sender: FDA-Public Use
  Company Number: US-CELGENEUS-USA-20210607469

PATIENT
  Age: 70 Year
  Sex: Female
  Weight: 93.52 kg

DRUGS (2)
  1. REVLIMID [Suspect]
     Active Substance: LENALIDOMIDE
     Indication: PLASMA CELL MYELOMA
     Dosage: 10 MILLIGRAM
     Route: 048
     Dates: start: 202106
  2. VELCADE [Suspect]
     Active Substance: BORTEZOMIB
     Indication: PRODUCT USED FOR UNKNOWN INDICATION
     Route: 065

REACTIONS (6)
  - Anxiety [Unknown]
  - Peripheral swelling [Unknown]
  - Arthropathy [Unknown]
  - Nausea [Unknown]
  - Abdominal discomfort [Unknown]
  - Constipation [Unknown]

NARRATIVE: CASE EVENT DATE: 202106
